FAERS Safety Report 7954236-3 (Version None)
Quarter: 2011Q4

REPORT INFORMATION
  Report Type: 
  Country: None (occurrence: None)
  Receive Date: 20111202
  Receipt Date: 20111122
  Transmission Date: 20120403
  Serious: Yes (Other)
  Sender: FDA-Public Use
  Company Number: FR-ROCHE-1013987

PATIENT
  Age: 86 Year
  Sex: Female

DRUGS (13)
  1. PIRACETAM [Concomitant]
     Indication: BALANCE DISORDER
     Route: 048
  2. SOLUPRED (FRANCE) [Concomitant]
     Dosage: SOLUPRED 20 ONE INTAKE ONLY
  3. TANAKAN (FRANCE) [Concomitant]
  4. PIRACETAM [Concomitant]
     Indication: TINNITUS
  5. NOOTROPYL [Concomitant]
  6. AUGMENTIN [Concomitant]
  7. SERMION [Concomitant]
  8. LEVOTHYROXINE SODIUM [Concomitant]
     Indication: THYROID NEOPLASM
     Route: 048
  9. STABLON [Concomitant]
     Indication: DEPRESSION
  10. SEREVENT [Concomitant]
  11. ASPIRIN [Concomitant]
     Route: 048
  12. BONIVA [Suspect]
     Indication: OSTEOPOROSIS
     Route: 048
     Dates: start: 20110501
  13. TELMISARTAN [Concomitant]
     Indication: HYPERTENSION
     Route: 048

REACTIONS (10)
  - FACIAL PAIN [None]
  - FACE OEDEMA [None]
  - PAIN IN JAW [None]
  - PYREXIA [None]
  - RASH [None]
  - CHEILITIS [None]
  - OROPHARYNGEAL PAIN [None]
  - LYMPHADENOPATHY [None]
  - ERYTHEMA [None]
  - HEADACHE [None]
